FAERS Safety Report 6150199-4 (Version None)
Quarter: 2009Q2

REPORT INFORMATION
  Report Type: 
  Country: None (occurrence: None)
  Receive Date: 20090409
  Receipt Date: 20090331
  Transmission Date: 20091009
  Serious: Yes (Other)
  Sender: FDA-Public Use
  Company Number: US-PFIZER INC-2006087906

PATIENT
  Sex: Female
  Weight: 95 kg

DRUGS (9)
  1. PROVERA [Suspect]
     Indication: MENOPAUSAL SYMPTOMS
     Dosage: UNK
     Route: 048
     Dates: start: 19910921, end: 20001130
  2. PREMARIN [Suspect]
     Indication: MENOPAUSAL SYMPTOMS
     Dosage: 0.625 MG, UNK
     Route: 065
     Dates: start: 19910921, end: 20001130
  3. MEDROXYPROGESTERONE [Suspect]
     Indication: MENOPAUSAL SYMPTOMS
     Dosage: 2.5 MG, UNK
     Dates: start: 19931121
  4. DIGOXIN [Concomitant]
     Indication: HYPERTENSION
     Dosage: UNK
     Dates: start: 19780101, end: 20060426
  5. MINIPRESS [Concomitant]
     Indication: HYPERTENSION
     Dosage: UNK
     Dates: start: 19780101, end: 20060426
  6. DIOVAN [Concomitant]
     Indication: HYPERTENSION
     Dosage: UNK
     Dates: start: 19970101, end: 20060426
  7. K-DUR [Concomitant]
     Indication: HYPERTENSION
     Dosage: UNK
     Dates: start: 19780101, end: 20060426
  8. DIAZEPAM [Concomitant]
     Indication: FEELING OF RELAXATION
     Dosage: UNK
     Dates: start: 19760101, end: 20060201
  9. ALLEGRA [Concomitant]
     Indication: HYPERSENSITIVITY
     Dosage: UNK
     Dates: start: 19950101, end: 20060426

REACTIONS (1)
  - BREAST CANCER FEMALE [None]
